FAERS Safety Report 9054930 (Version 1)
Quarter: 2013Q1

REPORT INFORMATION
  Report Type: Spontaneous
  Country: FR (occurrence: FR)
  Receive Date: 20130208
  Receipt Date: 20130208
  Transmission Date: 20140127
  Serious: Yes (Hospitalization)
  Sender: FDA-Public Use
  Company Number: FR-VERTEX PHARMACEUTICALS INC.-2013-001586

PATIENT
  Age: 50 None
  Sex: Male

DRUGS (8)
  1. INCIVO [Suspect]
     Indication: PRODUCT USED FOR UNKNOWN INDICATION
     Dosage: 6 DF, QD
     Route: 048
     Dates: start: 20120830, end: 20121024
  2. PEGASYS [Concomitant]
     Indication: PRODUCT USED FOR UNKNOWN INDICATION
     Dosage: 180 ?G, BID
     Dates: start: 20120402
  3. PEGASYS [Concomitant]
     Dosage: 180 ?G, UNK
     Dates: start: 201201, end: 20120402
  4. COPEGUS [Concomitant]
     Indication: PRODUCT USED FOR UNKNOWN INDICATION
     Dosage: 2000 MG, QD
     Dates: start: 20121030
  5. COPEGUS [Concomitant]
     Dosage: 1400 MG, QD
     Dates: start: 20120309
  6. COPEGUS [Concomitant]
     Dosage: 1600 MG, QD
     Dates: start: 20121025
  7. COPEGUS [Concomitant]
     Dosage: 1800 MG, QD
     Dates: start: 20120619
  8. COPEGUS [Concomitant]
     Dosage: 1600 MG, QD
     Dates: start: 20120402

REACTIONS (1)
  - Anal ulcer [Recovered/Resolved]
